FAERS Safety Report 5444335-2 (Version None)
Quarter: 2007Q3

REPORT INFORMATION
  Report Type: 
  Country: None (occurrence: None)
  Receive Date: 20070906
  Receipt Date: 20070827
  Transmission Date: 20080115
  Serious: Yes (Other)
  Sender: FDA-Public Use
  Company Number: PHEH2007US11778

PATIENT
  Age: 27 Year
  Sex: Female

DRUGS (3)
  1. TRILEPTAL [Suspect]
  2. TEGRETOL [Suspect]
     Dosage: 100 MG, TID
     Route: 048
  3. DEPAKOTE [Concomitant]

REACTIONS (4)
  - JOINT LOCK [None]
  - MASTICATION DISORDER [None]
  - PAIN [None]
  - TRISMUS [None]
